FAERS Safety Report 9083884 (Version 3)
Quarter: 2013Q1

REPORT INFORMATION
  Report Type: Spontaneous
  Country: AU (occurrence: AU)
  Receive Date: 20130130
  Receipt Date: 20130312
  Transmission Date: 20140127
  Serious: Yes (Life-Threatening, Hospitalization, Other)
  Sender: FDA-Public Use
  Company Number: AU-PFIZER INC-2012315253

PATIENT
  Age: 78 Year
  Sex: Female

DRUGS (8)
  1. OLMETEC [Suspect]
     Indication: HYPERTENSION
     Dosage: 40 MG, DAILY
     Route: 048
     Dates: start: 201106, end: 201206
  2. OLMETEC [Suspect]
     Dosage: UNK
     Route: 048
     Dates: start: 20120828, end: 20120905
  3. OLMETEC [Suspect]
     Dosage: UNK
     Route: 048
     Dates: start: 20120910, end: 201209
  4. OLMETEC [Suspect]
     Dosage: 20 MG, UNK
     Route: 048
     Dates: end: 201209
  5. METRONIDAZOLE [Suspect]
     Indication: CLOSTRIDIUM DIFFICILE INFECTION
     Dosage: UNK
     Route: 065
     Dates: start: 201206, end: 201206
  6. ATENOLOL [Concomitant]
     Indication: BLOOD PRESSURE ABNORMAL
     Dosage: 50 MG, 1X/DAY
     Route: 048
     Dates: start: 1990
  7. PRAVASTATIN [Concomitant]
     Indication: PRODUCT USED FOR UNKNOWN INDICATION
     Dosage: UNK
     Dates: end: 2012
  8. ASPIRIN [Concomitant]
     Dosage: UNK
     Dates: end: 2012

REACTIONS (13)
  - Weight decreased [Recovering/Resolving]
  - Clostridium difficile infection [Unknown]
  - Dehydration [Recovered/Resolved]
  - Intestinal villi atrophy [Unknown]
  - Fall [Recovered/Resolved]
  - Vomiting [Unknown]
  - Renal failure acute [Unknown]
  - Nausea [Unknown]
  - Diarrhoea [Recovered/Resolved]
  - White blood cell count increased [Unknown]
  - Hypotension [Unknown]
  - Blood pressure increased [Unknown]
  - Culture urine positive [Unknown]
